FAERS Safety Report 5565242-0 (Version None)
Quarter: 2007Q4

REPORT INFORMATION
  Report Type: 
  Country: None (occurrence: None)
  Receive Date: 20071218
  Receipt Date: 20071206
  Transmission Date: 20080405
  Serious: Yes (Hospitalization, Other)
  Sender: FDA-Public Use
  Company Number: US-AMGEN-US255823

PATIENT
  Sex: Female

DRUGS (6)
  1. PROCRIT [Suspect]
     Indication: ANAEMIA
     Dates: start: 20070829
  2. INTERFERON ALFA-2B [Suspect]
     Indication: HEPATITIS C
     Route: 058
     Dates: start: 20070613, end: 20070727
  3. RIBAVIRIN [Suspect]
     Route: 048
     Dates: start: 20070613, end: 20070802
  4. VALSARTAN [Concomitant]
  5. ASPIRIN [Concomitant]
  6. VITAMIN CAP [Concomitant]

REACTIONS (2)
  - ANAEMIA [None]
  - NON-CARDIAC CHEST PAIN [None]
